FAERS Safety Report 17702646 (Version 1)
Quarter: 2020Q2

REPORT INFORMATION
  Report Type: Spontaneous
  Country: GR (occurrence: GR)
  Receive Date: 20200423
  Receipt Date: 20200423
  Transmission Date: 20200714
  Serious: Yes (Hospitalization, Other)
  Sender: FDA-Public Use
  Company Number: NVSC2020GR107979

PATIENT

DRUGS (1)
  1. AMOXICILLIN, CLAVULANIC ACID [Suspect]
     Active Substance: AMOXICILLIN\CLAVULANIC ACID
     Indication: BRONCHITIS
     Dosage: UNK
     Route: 065

REACTIONS (10)
  - Skin lesion [Unknown]
  - Pustule [Unknown]
  - Skin oedema [Unknown]
  - Skin plaque [Unknown]
  - Cutaneous vasculitis [Unknown]
  - Skin hyperpigmentation [Unknown]
  - Subcutaneous abscess [Unknown]
  - Pruritus [Unknown]
  - Acute generalised exanthematous pustulosis [Unknown]
  - Rash [Recovered/Resolved]
